FAERS Safety Report 9272979 (Version 2)
Quarter: 2013Q2

REPORT INFORMATION
  Report Type: Spontaneous
  Country: US (occurrence: US)
  Receive Date: 20130506
  Receipt Date: 20130522
  Transmission Date: 20140414
  Serious: Yes (Death, Hospitalization)
  Sender: FDA-Public Use
  Company Number: US-VERTEX PHARMACEUTICALS INC-2013-005711

PATIENT
  Age: 57 Year
  Sex: Female

DRUGS (3)
  1. INCIVEK [Suspect]
     Indication: HEPATITIS C
     Dosage: UNK
     Route: 048
     Dates: start: 20130206
  2. RIBAVIRIN [Suspect]
     Indication: HEPATITIS C
     Dosage: 800 UNK, UNK
     Dates: start: 20130206
  3. PEGASYS [Suspect]
     Indication: HEPATITIS C
     Dosage: 135 ?G, QW
     Dates: start: 20130206

REACTIONS (1)
  - Pneumonia staphylococcal [Fatal]
